FAERS Safety Report 8465338 (Version 2)
Quarter: 2012Q4

REPORT INFORMATION
  Report Type: 
  Country: US (occurrence: US)
  Receive Date: 20120319
  Receipt Date: 20121213
  Transmission Date: 20130627
  Serious: Yes (Other)
  Sender: FDA-Public Use
  Company Number: US-ROCHE-1047355

PATIENT
  Sex: Male
  Weight: 68.1 kg

DRUGS (1)
  1. ACCUTANE [Suspect]
     Indication: ACNE
     Route: 065
     Dates: start: 198901, end: 19910615

REACTIONS (9)
  - Crohn^s disease [Unknown]
  - Inflammatory bowel disease [Unknown]
  - Depression [Not Recovered/Not Resolved]
  - Vitamin B12 deficiency [Unknown]
  - Superior sagittal sinus thrombosis [Unknown]
  - Spinal cord neoplasm [Unknown]
  - Injury [Unknown]
  - Intestinal obstruction [Unknown]
  - Ileal fistula [Unknown]
